FAERS Safety Report 7236691-X (Version None)
Quarter: 2011Q1

REPORT INFORMATION
  Report Type: 
  Country: None (occurrence: None)
  Receive Date: 20110120
  Receipt Date: 20110117
  Transmission Date: 20110831
  Serious: Yes (Other)
  Sender: FDA-Public Use
  Company Number: BR-PFIZER INC-2011011430

PATIENT
  Age: 68 Year
  Sex: Male

DRUGS (1)
  1. SUNITINIB MALATE [Suspect]
     Indication: METASTATIC RENAL CELL CARCINOMA
     Dosage: 50MG DAILY DOSING (4 WEEKS ON / 2 WEEKS OFF)
     Dates: start: 20100101

REACTIONS (5)
  - PROSTHESIS IMPLANTATION [None]
  - AORTIC DISSECTION [None]
  - CHEST PAIN [None]
  - HYPERTENSION [None]
  - MEDIASTINAL DISORDER [None]
